FAERS Safety Report 19483359 (Version 1)
Quarter: 2021Q3

REPORT INFORMATION
  Report Type: Report from Study
  Country: AU (occurrence: AU)
  Receive Date: 20210701
  Receipt Date: 20210701
  Transmission Date: 20211014
  Serious: Yes (Life-Threatening, Other)
  Sender: FDA-Public Use
  Company Number: NVSC2021AU144389

PATIENT
  Age: 70 Year
  Sex: Male

DRUGS (3)
  1. RYDAPT [Suspect]
     Active Substance: MIDOSTAURIN
     Indication: ACUTE MYELOID LEUKAEMIA
     Dosage: 100 MG
     Route: 065
     Dates: start: 20210612, end: 20210623
  2. CYTARABINE. [Suspect]
     Active Substance: CYTARABINE
     Indication: ACUTE MYELOID LEUKAEMIA
     Dosage: 4000 MG
     Route: 065
     Dates: start: 20210605, end: 20210610
  3. DAUNORUBICIN [Suspect]
     Active Substance: DAUNORUBICIN
     Indication: ACUTE MYELOID LEUKAEMIA
     Dosage: 60 MG/KG
     Route: 065
     Dates: start: 20210605, end: 20210607

REACTIONS (11)
  - Enterococcal infection [Unknown]
  - Hypoxia [Unknown]
  - Lower respiratory tract infection [Unknown]
  - Streptococcal infection [Unknown]
  - Pyrexia [Not Recovered/Not Resolved]
  - Alpha haemolytic streptococcal infection [Unknown]
  - Septic shock [Not Recovered/Not Resolved]
  - Febrile neutropenia [Unknown]
  - Hypotension [Unknown]
  - Pulmonary oedema [Unknown]
  - Acute kidney injury [Unknown]

NARRATIVE: CASE EVENT DATE: 20210620
